FAERS Safety Report 4382162-8 (Version None)
Quarter: 2004Q2

REPORT INFORMATION
  Report Type: 
  Country: None (occurrence: None)
  Receive Date: 20040618
  Receipt Date: 20040618
  Transmission Date: 20050107
  Serious: Yes (Other)
  Sender: FDA-Public Use
  Company Number: None

PATIENT
  Age: 70 Year
  Sex: Male
  Weight: 92.5 kg

DRUGS (4)
  1. OMEPRAZOLE [Suspect]
  2. SILDENAFIL CITRATE 100 MG TAB [Suspect]
  3. COLCHICINE [Concomitant]
  4. INDOMETHACIN 25MG CAP [Concomitant]

REACTIONS (1)
  - GASTROINTESTINAL DISORDER [None]
